FAERS Safety Report 9778463 (Version 2)
Quarter: 2014Q1

REPORT INFORMATION
  Report Type: Spontaneous
  Country: JP (occurrence: JP)
  Receive Date: 20131223
  Receipt Date: 20140122
  Transmission Date: 20141002
  Serious: Yes (Other)
  Sender: FDA-Public Use
  Company Number: JP-ASTELLAS-2013JP014016

PATIENT
  Age: 67 Year
  Sex: Female

DRUGS (4)
  1. PROGRAF [Suspect]
     Indication: SYSTEMIC LUPUS ERYTHEMATOSUS
     Dosage: 2 MG, UNKNOWN/D
     Route: 048
  2. PROGRAF [Suspect]
     Indication: ANTIPHOSPHOLIPID SYNDROME
  3. PREDONINE                          /00016201/ [Concomitant]
     Indication: SYSTEMIC LUPUS ERYTHEMATOSUS
     Route: 065
  4. PREDONINE                          /00016201/ [Concomitant]
     Indication: ANTIPHOSPHOLIPID SYNDROME

REACTIONS (2)
  - Off label use [Unknown]
  - Renal impairment [Unknown]
